FAERS Safety Report 9485440 (Version 1)
Quarter: 2013Q3

REPORT INFORMATION
  Report Type: Spontaneous
  Country: US (occurrence: US)
  Receive Date: 20130829
  Receipt Date: 20130829
  Transmission Date: 20140515
  Serious: No
  Sender: FDA-Public Use
  Company Number: US-009507513-1308USA007182

PATIENT
  Sex: Female

DRUGS (7)
  1. FOSAMAX [Suspect]
     Dosage: 70 MG, QW
     Route: 048
     Dates: start: 20130718
  2. SUCRALFATE [Suspect]
     Dosage: UNK
     Dates: end: 2013
  3. TRAMADOL HYDROCHLORIDE [Suspect]
     Dosage: UNK
     Dates: end: 2013
  4. DIOVAN [Concomitant]
  5. PRAVASTATIN SODIUM [Concomitant]
  6. METOPROLOL [Concomitant]
  7. DEXILANT [Concomitant]

REACTIONS (2)
  - Loose tooth [Not Recovered/Not Resolved]
  - Gastric ulcer [Not Recovered/Not Resolved]
